FAERS Safety Report 10402614 (Version 2)
Quarter: 2014Q3

REPORT INFORMATION
  Report Type: Spontaneous
  Country: US (occurrence: US)
  Receive Date: 20140822
  Receipt Date: 20140822
  Transmission Date: 20150326
  Serious: Yes (Hospitalization)
  Sender: FDA-Public Use
  Company Number: US-009507513-2009-198799-NL

PATIENT
  Sex: Female
  Weight: 61.2 kg

DRUGS (6)
  1. CITRUCEL (METHYLCELLULOSE) [Concomitant]
     Indication: PRODUCT USED FOR UNKNOWN INDICATION
  2. ACTONEL [Suspect]
     Active Substance: RISEDRONATE SODIUM
     Indication: OSTEOPENIA
  3. MIACALCIN [Concomitant]
     Active Substance: CALCITONIN SALMON
     Indication: PRODUCT USED FOR UNKNOWN INDICATION
     Dosage: 1 SPRAY TO ONE NARE QD
     Route: 045
  4. NUVARING [Suspect]
     Active Substance: ETHINYL ESTRADIOL\ETONOGESTREL
     Indication: MENSTRUATION IRREGULAR
     Dosage: CONTINUING: NO
     Dates: start: 200312, end: 200512
  5. MAXALT [Concomitant]
     Active Substance: RIZATRIPTAN BENZOATE
     Indication: MIGRAINE
     Dosage: 10 MG, QD
  6. FORTAMET [Concomitant]
     Active Substance: METFORMIN HYDROCHLORIDE
     Indication: PRODUCT USED FOR UNKNOWN INDICATION
     Dosage: 500 MG, QD
     Route: 048

REACTIONS (6)
  - Off label use [Unknown]
  - Dyspepsia [Unknown]
  - Depression [Unknown]
  - Post thrombotic syndrome [Unknown]
  - Low density lipoprotein increased [Unknown]
  - Deep vein thrombosis [Unknown]

NARRATIVE: CASE EVENT DATE: 20051226
